FAERS Safety Report 4964634-8 (Version None)
Quarter: 2006Q2

REPORT INFORMATION
  Report Type: 
  Country: None (occurrence: None)
  Receive Date: 20060406
  Receipt Date: 20051019
  Transmission Date: 20061013
  Serious: Yes (Hospitalization, Other)
  Sender: FDA-Public Use
  Company Number: US-MERCK-0510USA08282

PATIENT
  Age: 56 Year
  Sex: Female
  Weight: 86 kg

DRUGS (9)
  1. VIOXX [Suspect]
     Indication: BACK PAIN
     Route: 048
     Dates: start: 20020101, end: 20040930
  2. VIOXX [Suspect]
     Indication: ARTHRALGIA
     Route: 048
     Dates: start: 20020101, end: 20040930
  3. DEMADEX [Concomitant]
     Indication: FLUID RETENTION
     Route: 065
     Dates: start: 20010101
  4. IMDUR [Concomitant]
     Indication: HYPERTENSION
     Route: 065
     Dates: start: 19940101
  5. LASIX [Concomitant]
     Indication: FLUID RETENTION
     Route: 065
     Dates: start: 20010101
  6. NITROGLYCERIN [Concomitant]
     Indication: CHEST PAIN
     Route: 065
     Dates: start: 19940101
  7. TOPAMAX [Concomitant]
     Indication: MIGRAINE
     Route: 065
     Dates: start: 20030101
  8. ISOSORBIDE [Concomitant]
     Indication: HYPERTENSION
     Route: 065
     Dates: start: 19940101
  9. PLAVIX [Concomitant]
     Indication: MYOCARDIAL INFARCTION
     Route: 065
     Dates: start: 20030101

REACTIONS (2)
  - DIABETES MELLITUS [None]
  - MYOCARDIAL INFARCTION [None]
